FAERS Safety Report 5877565-6 (Version None)
Quarter: 2008Q3

REPORT INFORMATION
  Report Type: 
  Country: None (occurrence: None)
  Receive Date: 20080911
  Receipt Date: 20080903
  Transmission Date: 20090109
  Serious: Yes (Other)
  Sender: FDA-Public Use
  Company Number: PHHY2008FR18969

PATIENT
  Sex: Male
  Weight: 106 kg

DRUGS (6)
  1. ZOMETA [Suspect]
     Indication: METASTASES TO BONE
     Dosage: 4 MG, UNK
     Dates: start: 20080510
  2. BETA BLOCKING AGENTS [Concomitant]
  3. KALETRA [Concomitant]
     Indication: HIV INFECTION
     Dosage: UNK
     Route: 048
     Dates: start: 20070101
  4. EPIVIR [Concomitant]
     Indication: HIV INFECTION
     Dosage: UNK
     Route: 048
     Dates: start: 20070101
  5. VIREAD [Concomitant]
     Indication: HIV INFECTION
     Dosage: UNK
     Dates: start: 20070101
  6. BACTRIM DS [Concomitant]
     Indication: HIV INFECTION
     Dosage: UNK
     Dates: start: 20070101

REACTIONS (8)
  - ARRHYTHMIA [None]
  - ATRIAL FIBRILLATION [None]
  - CARDIAC FAILURE [None]
  - DYSPNOEA [None]
  - GENERALISED OEDEMA [None]
  - PALPITATIONS [None]
  - TACHYARRHYTHMIA [None]
  - WEIGHT INCREASED [None]
